FAERS Safety Report 6058591-3 (Version None)
Quarter: 2009Q1

REPORT INFORMATION
  Report Type: 
  Country: None (occurrence: None)
  Receive Date: 20090130
  Receipt Date: 20090126
  Transmission Date: 20090719
  Serious: Yes (Other)
  Sender: FDA-Public Use
  Company Number: JP-BAYER-200812405BYL

PATIENT
  Age: 86 Year
  Sex: Female

DRUGS (10)
  1. ADALAT CC [Suspect]
     Indication: ESSENTIAL HYPERTENSION
     Dosage: TOTAL DAILY DOSE: 20 MG  UNIT DOSE: 20 MG
     Route: 048
     Dates: start: 20080222
  2. BLOPRESS [Concomitant]
     Indication: ESSENTIAL HYPERTENSION
     Dosage: TOTAL DAILY DOSE: 8 MG
     Route: 048
     Dates: start: 20031122, end: 20080408
  3. OLMETEC [Concomitant]
     Indication: ESSENTIAL HYPERTENSION
     Dosage: TOTAL DAILY DOSE: 20 MG
     Route: 048
     Dates: start: 20080409
  4. ARRESTEN [Concomitant]
     Indication: ESSENTIAL HYPERTENSION
     Route: 048
     Dates: start: 20031122, end: 20080409
  5. CONIEL [Concomitant]
     Indication: ESSENTIAL HYPERTENSION
     Dosage: UNIT DOSE: 2 MG
     Route: 048
     Dates: start: 20080123, end: 20080221
  6. DEPAS [Concomitant]
     Dosage: AS USED: 1 MG
     Route: 048
     Dates: start: 20080105
  7. EURODIN [Concomitant]
     Route: 048
     Dates: start: 20031122
  8. SIGMART [Concomitant]
     Route: 048
     Dates: start: 20080307
  9. EVISTA [Concomitant]
     Indication: OSTEOPOROSIS
     Route: 048
     Dates: start: 20060116
  10. NITROPEN [Concomitant]
     Route: 060

REACTIONS (2)
  - ANGINA PECTORIS [None]
  - CHEST PAIN [None]
